FAERS Safety Report 12540351 (Version 1)
Quarter: 2016Q3

REPORT INFORMATION
  Report Type: Spontaneous
  Country: US (occurrence: US)
  Receive Date: 20160708
  Receipt Date: 20160708
  Transmission Date: 20161109
  Serious: No
  Sender: FDA-Public Use
  Company Number: US-PFIZER INC-2016302121

PATIENT
  Age: 80 Year
  Sex: Female
  Weight: 81.65 kg

DRUGS (1)
  1. ADVIL PM [Suspect]
     Active Substance: DIPHENHYDRAMINE CITRATE\IBUPROFEN
     Indication: SLEEP DISORDER
     Dosage: 200 MG, 1X/DAY
     Route: 048

REACTIONS (4)
  - Eye disorder [Unknown]
  - Product use issue [Unknown]
  - Cognitive disorder [Unknown]
  - Tinnitus [Unknown]
